FAERS Safety Report 9931687 (Version 5)
Quarter: 2017Q2

REPORT INFORMATION
  Report Type: Report from Study
  Country: DE (occurrence: DE)
  Receive Date: 20140228
  Receipt Date: 20170407
  Transmission Date: 20170830
  Serious: Yes (Life-Threatening)
  Sender: FDA-Public Use
  Company Number: DE-PFIZER INC-2014053832

PATIENT
  Age: 70 Year
  Sex: Female
  Weight: 66 kg

DRUGS (2)
  1. AROMASIN [Suspect]
     Active Substance: EXEMESTANE
     Indication: BREAST CANCER
     Dosage: 25 MG, DAILY
     Route: 048
     Dates: start: 20120130
  2. AROMASIN [Suspect]
     Active Substance: EXEMESTANE
     Dosage: 25 MG, DAILY
     Route: 048
     Dates: end: 20161121

REACTIONS (2)
  - Second primary malignancy [Recovered/Resolved]
  - Colon cancer [Recovered/Resolved]

NARRATIVE: CASE EVENT DATE: 20140224
